FAERS Safety Report 19737105 (Version 3)
Quarter: 2021Q4

REPORT INFORMATION
  Report Type: Spontaneous
  Country: IE (occurrence: IE)
  Receive Date: 20210823
  Receipt Date: 20211013
  Transmission Date: 20220303
  Serious: Yes (Death, Life-Threatening, Other)
  Sender: FDA-Public Use
  Company Number: IE-MLMSERVICE-20210804-3027537-1

PATIENT
  Sex: Female

DRUGS (6)
  1. PROPOFOL [Suspect]
     Active Substance: PROPOFOL
     Dosage: INFUSION
     Route: 041
  2. LIDOCAINE HYDROCHLORIDE [Concomitant]
     Active Substance: LIDOCAINE HYDROCHLORIDE
     Dosage: INFUSION
     Route: 041
  3. LORAZEPAM [Concomitant]
     Active Substance: LORAZEPAM
     Dosage: INFUSION
     Route: 041
  4. DIAZEPAM [Concomitant]
     Active Substance: DIAZEPAM
     Dosage: INFUSION
     Route: 041
  5. MIDAZOLAM [Concomitant]
     Active Substance: MIDAZOLAM
     Dosage: INFUSION
     Route: 041
  6. CYCLIZINE [Concomitant]
     Active Substance: CYCLIZINE
     Dosage: INFUSION
     Route: 041

REACTIONS (1)
  - Drug abuse [Fatal]
